FAERS Safety Report 9570011 (Version 1)
Quarter: 2013Q3

REPORT INFORMATION
  Report Type: Spontaneous
  Country: US (occurrence: None)
  Receive Date: 20130926
  Receipt Date: 20130926
  Transmission Date: 20140515
  Serious: Yes (Other)
  Sender: FDA-Public Use
  Company Number: None

PATIENT
  Age: 52 Year
  Sex: Female
  Weight: 77.11 kg

DRUGS (2)
  1. AFRIN [Suspect]
     Indication: NASOPHARYNGITIS
     Dates: start: 20130615, end: 20130616
  2. AFRIN [Suspect]
     Indication: NASAL OEDEMA
     Dates: start: 20130615, end: 20130616

REACTIONS (3)
  - Ageusia [None]
  - Anosmia [None]
  - Dysgeusia [None]
